FAERS Safety Report 6913117-4 (Version None)
Quarter: 2010Q3

REPORT INFORMATION
  Report Type: 
  Country: None (occurrence: None)
  Receive Date: 20100806
  Receipt Date: 20090801
  Transmission Date: 20110219
  Serious: No
  Sender: FDA-Public Use
  Company Number: US-PFIZER INC-2009218236

PATIENT
  Sex: Male

DRUGS (1)
  1. LOPID [Suspect]
     Dosage: UNK
     Dates: start: 20081101

REACTIONS (2)
  - AGEUSIA [None]
  - ANOSMIA [None]
